FAERS Safety Report 5367088-5 (Version None)
Quarter: 2007Q2

REPORT INFORMATION
  Report Type: 
  Country: None (occurrence: None)
  Receive Date: 20070622
  Receipt Date: 20070312
  Transmission Date: 20071010
  Serious: Yes (Other)
  Sender: FDA-Public Use
  Company Number: US-SANOFI-SYNTHELABO-A03200703965

PATIENT
  Sex: Female

DRUGS (4)
  1. NORVASC [Concomitant]
     Route: 065
  2. ZOLOFT [Concomitant]
     Route: 065
  3. AMBIEN [Suspect]
     Indication: DRUG USE FOR UNKNOWN INDICATION
     Dosage: UNK
     Route: 048
  4. PREMARIN [Concomitant]
     Route: 048

REACTIONS (5)
  - AMNESIA [None]
  - EATING DISORDER [None]
  - FACIAL BONES FRACTURE [None]
  - SLEEP TALKING [None]
  - SLEEP WALKING [None]
